FAERS Safety Report 9647942 (Version 8)
Quarter: 2014Q2

REPORT INFORMATION
  Report Type: Spontaneous
  Country: US (occurrence: US)
  Receive Date: 20131028
  Receipt Date: 20140602
  Transmission Date: 20141212
  Serious: Yes (Hospitalization)
  Sender: FDA-Public Use
  Company Number: US-009507513-1310USA011603

PATIENT
  Age: 59 Year
  Sex: Male

DRUGS (4)
  1. PEGINTRON [Suspect]
     Indication: HEPATITIS C
     Dosage: STRENGTH: 120 MICROGRAM; DOSE: 0.5 CC, FREQUENCY, ONCE A WEEK (REDIPEN)
     Route: 058
     Dates: start: 20131018, end: 20140410
  2. REBETOL [Suspect]
     Indication: HEPATITIS C
     Dosage: 1000 MG, BID (TWICE A DAY)
     Route: 048
     Dates: start: 20131018, end: 20140410
  3. VICTRELIS [Suspect]
     Indication: HEPATITIS C
     Dosage: 2400 MG, TID (THREE TIMES A DAY)
     Route: 048
     Dates: start: 20131115, end: 20140410
  4. PHENERGAN (PROMETHAZINE HYDROCHLORIDE) [Concomitant]
     Dosage: UNK

REACTIONS (25)
  - Blood glucose increased [Unknown]
  - Vomiting [Unknown]
  - Asthenia [Unknown]
  - Nausea [Unknown]
  - Injection site pain [Recovered/Resolved]
  - White blood cell count decreased [Unknown]
  - Diabetes mellitus [Unknown]
  - Oesophagitis [Unknown]
  - Malnutrition [Unknown]
  - Sleep disorder [Unknown]
  - Pain [Unknown]
  - White blood cell count decreased [Unknown]
  - Appetite disorder [Unknown]
  - Pain [Unknown]
  - Influenza like illness [Unknown]
  - Fatigue [Unknown]
  - Nausea [Unknown]
  - Rash [Unknown]
  - Nausea [Unknown]
  - Asthenia [Unknown]
  - Chills [Unknown]
  - Dyspnoea [Unknown]
  - Red blood cell count decreased [Unknown]
  - Platelet count decreased [Unknown]
  - Fatigue [Unknown]
